FAERS Safety Report 14886014 (Version 3)
Quarter: 2019Q1

REPORT INFORMATION
  Report Type: Spontaneous
  Country: JP (occurrence: JP)
  Receive Date: 20180512
  Receipt Date: 20190107
  Transmission Date: 20190417
  Serious: Yes (Life-Threatening, Other)
  Sender: FDA-Public Use
  Company Number: JP-CONCORDIA PHARMACEUTICALS INC.-E2B_00011674

PATIENT
  Age: 64 Year
  Sex: Male

DRUGS (14)
  1. PREDNISOLONE. [Suspect]
     Active Substance: PREDNISOLONE
     Indication: CHRONIC GRAFT VERSUS HOST DISEASE
     Dosage: FROM DAY 99
  2. ELTROMBOPAG [Suspect]
     Active Substance: ELTROMBOPAG
     Indication: THROMBOCYTOPENIA
  3. ELTROMBOPAG [Suspect]
     Active Substance: ELTROMBOPAG
     Dosage: INCREASED
  4. TACROLIMUS. [Suspect]
     Active Substance: TACROLIMUS
     Indication: ACUTE GRAFT VERSUS HOST DISEASE IN SKIN
     Dosage: INCREASED
  5. IMMUNE GLOBULIN NOS [Suspect]
     Active Substance: IMMUNE GLOBULIN NOS
     Indication: THROMBOCYTOPENIA
     Route: 042
  6. PREDNISOLONE. [Suspect]
     Active Substance: PREDNISOLONE
     Indication: THROMBOCYTOPENIA
     Dosage: INCREASED
  7. FILGRASTIM [Concomitant]
     Active Substance: FILGRASTIM
     Indication: NEUTROPENIA
  8. METHOTREXATE. [Concomitant]
     Active Substance: METHOTREXATE
     Indication: PROPHYLAXIS AGAINST GRAFT VERSUS HOST DISEASE
     Dosage: DAY 3, DAY 6
  9. TACROLIMUS. [Suspect]
     Active Substance: TACROLIMUS
     Indication: THROMBOCYTOPENIA
     Dosage: DOSE REDUCED
  10. PREDNISOLONE. [Suspect]
     Active Substance: PREDNISOLONE
     Indication: PNEUMONIA
     Dosage: INCREASED
  11. ROMIPLOSTIM [Concomitant]
     Active Substance: ROMIPLOSTIM
     Indication: THROMBOCYTOPENIA
  12. TACROLIMUS. [Suspect]
     Active Substance: TACROLIMUS
     Indication: PROPHYLAXIS AGAINST GRAFT VERSUS HOST DISEASE
     Dosage: DAY 1
  13. TACROLIMUS. [Suspect]
     Active Substance: TACROLIMUS
     Dosage: DOSE INCREASED
  14. CYCLOSPORINE. [Concomitant]
     Active Substance: CYCLOSPORINE
     Indication: THROMBOCYTOPENIA

REACTIONS (2)
  - Renal impairment [Unknown]
  - Drug ineffective [Unknown]
